FAERS Safety Report 4994831-7 (Version None)
Quarter: 2006Q2

REPORT INFORMATION
  Report Type: 
  Country: None (occurrence: None)
  Receive Date: 20060508
  Receipt Date: 20060419
  Transmission Date: 20061013
  Serious: Yes (Other)
  Sender: FDA-Public Use
  Company Number: PHEH2006US05171

PATIENT
  Age: 7 Year
  Sex: Male

DRUGS (5)
  1. LAMISIL [Suspect]
     Indication: TINEA CAPITIS
     Dosage: 125 MG, QD
     Route: 048
     Dates: start: 20060407, end: 20060413
  2. STRATTERA [Suspect]
     Indication: ATTENTION DEFICIT/HYPERACTIVITY DISORDER
     Route: 048
     Dates: start: 20060407, end: 20060413
  3. TRILEPTAL [Concomitant]
  4. KEPPRA [Concomitant]
  5. ADDERALL 10 [Concomitant]

REACTIONS (5)
  - ASPARTATE AMINOTRANSFERASE INCREASED [None]
  - BLOOD CREATINE PHOSPHOKINASE INCREASED [None]
  - MUSCLE SPASMS [None]
  - PAIN IN EXTREMITY [None]
  - RHABDOMYOLYSIS [None]
